FAERS Safety Report 13597073 (Version 9)
Quarter: 2018Q1

REPORT INFORMATION
  Report Type: Spontaneous
  Country: US (occurrence: US)
  Receive Date: 20170531
  Receipt Date: 20180130
  Transmission Date: 20180508
  Serious: Yes (Congenital Anomaly, Other)
  Sender: FDA-Public Use
  Company Number: PHEH2017US016229

PATIENT
  Sex: Female

DRUGS (2)
  1. ZOFRAN ODT [Suspect]
     Active Substance: ONDANSETRON HYDROCHLORIDE
     Indication: FOETAL EXPOSURE DURING PREGNANCY
     Dosage: MOTHER DOSE FREQUENCY: QD
     Route: 064
  2. ONDANSETRON HYDROCHLORIDE. [Suspect]
     Active Substance: ONDANSETRON HYDROCHLORIDE
     Indication: FOETAL EXPOSURE DURING PREGNANCY
     Dosage: UNK
     Route: 064

REACTIONS (49)
  - Persistent foetal circulation [Unknown]
  - Atrial septal defect [Unknown]
  - Nasal congestion [Unknown]
  - Gastroenteritis [Unknown]
  - Bronchitis chronic [Unknown]
  - Pharyngitis streptococcal [Unknown]
  - Selective eating disorder [Unknown]
  - Laryngitis [Unknown]
  - Torticollis [Unknown]
  - Pyrexia [Unknown]
  - Rash [Unknown]
  - Neonatal respiratory distress syndrome [Recovered/Resolved]
  - Otitis media chronic [Unknown]
  - Vaginal infection [Unknown]
  - Dermatitis contact [Unknown]
  - Urticaria [Unknown]
  - Eustachian tube dysfunction [Unknown]
  - Primary ciliary dyskinesia [Unknown]
  - Adenoiditis [Unknown]
  - Atelectasis [Unknown]
  - Neonatal tachypnoea [Unknown]
  - Sepsis neonatal [Unknown]
  - Immunodeficiency [Unknown]
  - Laryngeal cleft [Unknown]
  - Heart disease congenital [Unknown]
  - Respiratory tract infection [Unknown]
  - Hypoxia [Unknown]
  - Fungal infection [Unknown]
  - Gastrooesophageal reflux disease [Unknown]
  - Rhinorrhoea [Unknown]
  - Ankyloglossia congenital [Unknown]
  - Neonatal hyponatraemia [Unknown]
  - Laryngeal obstruction [Unknown]
  - Pneumonia [Unknown]
  - Deafness [Unknown]
  - Sleep apnoea syndrome [Unknown]
  - Dermatitis diaper [Unknown]
  - Dysphagia [Unknown]
  - Asthma [Unknown]
  - Foetal exposure during pregnancy [Unknown]
  - Cough [Unknown]
  - Ear infection [Unknown]
  - Dyspnoea [Unknown]
  - Right-to-left cardiac shunt [Unknown]
  - Rhinitis [Unknown]
  - Cyanosis [Unknown]
  - Chronic sinusitis [Unknown]
  - Dysuria [Unknown]
  - Viral rash [Unknown]
